FAERS Safety Report 8066000-8 (Version None)
Quarter: 2012Q1

REPORT INFORMATION
  Report Type: 
  Country: None (occurrence: None)
  Receive Date: 20120117
  Receipt Date: 20120106
  Transmission Date: 20120608
  Serious: Yes (Hospitalization, Other)
  Sender: FDA-Public Use
  Company Number: NSR-00357-2012

PATIENT
  Age: 27 Year
  Sex: Female

DRUGS (1)
  1. PROPRANOLOL [Suspect]
     Indication: PRODUCT USED FOR UNKNOWN INDICATION
     Dosage: (DF)

REACTIONS (12)
  - GRAND MAL CONVULSION [None]
  - BRADYCARDIA [None]
  - DEVICE INEFFECTIVE [None]
  - INTENTIONAL OVERDOSE [None]
  - PULSE ABSENT [None]
  - MYDRIASIS [None]
  - CIRCULATORY COLLAPSE [None]
  - PUPILLARY REFLEX IMPAIRED [None]
  - BUNDLE BRANCH BLOCK RIGHT [None]
  - GENERAL PHYSICAL HEALTH DETERIORATION [None]
  - NO THERAPEUTIC RESPONSE [None]
  - ELECTROCARDIOGRAM QT PROLONGED [None]
